FAERS Safety Report 12564637 (Version 2)
Quarter: 2017Q3

REPORT INFORMATION
  Report Type: Spontaneous
  Country: US (occurrence: US)
  Receive Date: 20160718
  Receipt Date: 20170710
  Transmission Date: 20171127
  Serious: No
  Sender: FDA-Public Use
  Company Number: US-THE MEDICINES COMPANY-US-MDCO-16-00090

PATIENT

DRUGS (1)
  1. IONSYS [Suspect]
     Active Substance: FENTANYL HYDROCHLORIDE
     Indication: DRUG WITHDRAWAL SYNDROME
     Dosage: NOT REPORTED

REACTIONS (2)
  - Off label use [Unknown]
  - No adverse event [Unknown]
